FAERS Safety Report 12883204 (Version 1)
Quarter: 2016Q4

REPORT INFORMATION
  Report Type: Spontaneous
  Country: US (occurrence: US)
  Receive Date: 20161025
  Receipt Date: 20161025
  Transmission Date: 20170207
  Serious: No
  Sender: FDA-Public Use
  Company Number: US-INCYTE CORPORATION-2016IN006536

PATIENT
  Age: 60 Year
  Sex: Female
  Weight: 58 kg

DRUGS (1)
  1. JAKAFI [Suspect]
     Active Substance: RUXOLITINIB
     Indication: POLYCYTHAEMIA VERA
     Dosage: 20 MG, BID
     Route: 048
     Dates: start: 2013

REACTIONS (1)
  - Tinnitus [Not Recovered/Not Resolved]

NARRATIVE: CASE EVENT DATE: 20151013
